FAERS Safety Report 23032635 (Version 1)
Quarter: 2023Q4

REPORT INFORMATION
  Report Type: Spontaneous
  Country: US (occurrence: US)
  Receive Date: 20231005
  Receipt Date: 20231005
  Transmission Date: 20240110
  Serious: Yes (Hospitalization, Other)
  Sender: FDA-Public Use
  Company Number: US-ENDO PHARMACEUTICALS INC-2023-005109

PATIENT
  Age: 58 Year
  Sex: Female

DRUGS (1)
  1. VENLAFAXINE HYDROCHLORIDE [Suspect]
     Active Substance: VENLAFAXINE HYDROCHLORIDE
     Indication: Product used for unknown indication
     Dosage: 29400 MILLIGRAMS, UNKNOWN (196 X VENLAFAXINE 150 MG ER CAPSULES)
     Route: 048

REACTIONS (4)
  - Cardiogenic shock [Recovering/Resolving]
  - Acute kidney injury [Unknown]
  - Ischaemic hepatitis [Unknown]
  - Overdose [Unknown]
